FAERS Safety Report 18819986 (Version 1)
Quarter: 2021Q1

REPORT INFORMATION
  Report Type: Report from Study
  Country: AR (occurrence: AR)
  Receive Date: 20210202
  Receipt Date: 20210202
  Transmission Date: 20210419
  Serious: Yes (Other)
  Sender: FDA-Public Use
  Company Number: NVSC2021AR017853

PATIENT
  Sex: Female

DRUGS (1)
  1. DIOVAN [Suspect]
     Active Substance: VALSARTAN
     Indication: HYPERTENSION
     Dosage: 1 AND ? TABLET DAILY OR 2
     Route: 065

REACTIONS (6)
  - Arrhythmia [Unknown]
  - Cardiac disorder [Unknown]
  - Osteoarthritis [Unknown]
  - Poor peripheral circulation [Unknown]
  - Thyroid disorder [Unknown]
  - Incorrect dose administered [Unknown]
